FAERS Safety Report 20255023 (Version 1)
Quarter: 2021Q4

REPORT INFORMATION
  Report Type: Spontaneous
  Country: CN (occurrence: CN)
  Receive Date: 20211230
  Receipt Date: 20211230
  Transmission Date: 20220303
  Serious: Yes (Hospitalization)
  Sender: FDA-Public Use
  Company Number: CN-PFIZER INC-202101815232

PATIENT
  Age: 62 Year
  Sex: Female
  Weight: 68 kg

DRUGS (5)
  1. MEDROL [Suspect]
     Active Substance: METHYLPREDNISOLONE
     Indication: Antiinflammatory therapy
     Dosage: 8 MG, 1X/DAY
     Route: 048
     Dates: start: 20210630, end: 20210804
  2. MEDROL [Suspect]
     Active Substance: METHYLPREDNISOLONE
     Dosage: 6 MG, 1X/DAY
     Route: 048
     Dates: start: 20210805, end: 20210902
  3. MEDROL [Suspect]
     Active Substance: METHYLPREDNISOLONE
     Dosage: 4 MG, 1X/DAY
     Route: 048
     Dates: start: 20210903, end: 20211028
  4. MEDROL [Suspect]
     Active Substance: METHYLPREDNISOLONE
     Dosage: 2 MG, 1X/DAY
     Route: 048
     Dates: start: 20211029, end: 20211201
  5. HERBALS [Suspect]
     Active Substance: HERBALS
     Indication: Immunosuppression
     Dosage: 20 MG, 3X/DAY
     Route: 048
     Dates: start: 20210630, end: 20211201

REACTIONS (1)
  - Urinary tract infection [Recovered/Resolved]

NARRATIVE: CASE EVENT DATE: 20211115
